FAERS Safety Report 23838949 (Version 2)
Quarter: 2025Q3

REPORT INFORMATION
  Report Type: Spontaneous
  Country: EU (occurrence: EU)
  Receive Date: 20240509
  Receipt Date: 20250708
  Transmission Date: 20251021
  Serious: Yes (Hospitalization, Other)
  Sender: SANDOZ
  Company Number: EU-RDY-LIT/ITA/24/0006213

PATIENT
  Age: 64 Year
  Sex: Male

DRUGS (4)
  1. AZACITIDINE [Suspect]
     Active Substance: AZACITIDINE
     Indication: Myelodysplastic syndrome
     Route: 065
     Dates: start: 202008
  2. AZACITIDINE [Suspect]
     Active Substance: AZACITIDINE
     Route: 065
     Dates: start: 202008
  3. ETANERCEPT [Suspect]
     Active Substance: ETANERCEPT
     Route: 065
     Dates: start: 202008
  4. ETANERCEPT [Suspect]
     Active Substance: ETANERCEPT
     Indication: Psoriatic arthropathy
     Route: 065
     Dates: start: 201801

REACTIONS (10)
  - Ulcerative gastritis [Recovered/Resolved]
  - Gastritis haemorrhagic [Recovered/Resolved]
  - Oesophagitis ulcerative [Recovered/Resolved]
  - Oesophagitis haemorrhagic [Recovered/Resolved]
  - Ulcerative duodenitis [Recovered/Resolved]
  - Haemophagocytic lymphohistiocytosis [Recovered/Resolved]
  - Drug ineffective [Unknown]
  - Oesophageal ulcer haemorrhage [Unknown]
  - Gastritis [Unknown]
  - Condition aggravated [Unknown]

NARRATIVE: CASE EVENT DATE: 20191101
